FAERS Safety Report 7930677-5 (Version None)
Quarter: 2011Q4

REPORT INFORMATION
  Report Type: 
  Country: None (occurrence: None)
  Receive Date: 20111121
  Receipt Date: 20111027
  Transmission Date: 20120403
  Serious: No
  Sender: FDA-Public Use
  Company Number: US-BAYER-2011-105414

PATIENT
  Age: 60 Year
  Sex: Male
  Weight: 113 kg

DRUGS (2)
  1. ALEVE (CAPLET) [Suspect]
     Dosage: 2 DF, BID
     Route: 048
     Dates: start: 20110601, end: 20110901
  2. ALEVE (CAPLET) [Suspect]
     Indication: ANALGESIC THERAPY
     Dosage: 1 DF, BID
     Route: 048
     Dates: start: 20110601, end: 20110901

REACTIONS (2)
  - PAIN [None]
  - NO ADVERSE EVENT [None]
